FAERS Safety Report 12921916 (Version 2)
Quarter: 2016Q4

REPORT INFORMATION
  Report Type: Spontaneous
  Country: IL (occurrence: IL)
  Receive Date: 20161108
  Receipt Date: 20161123
  Transmission Date: 20170207
  Serious: Yes (Other)
  Sender: FDA-Public Use
  Company Number: IL-BAYER-2016-211122

PATIENT
  Age: 65 Year
  Sex: Female

DRUGS (1)
  1. MIRENA [Suspect]
     Active Substance: LEVONORGESTREL
     Dosage: 20 MCG/24HR, CONT
     Route: 015
     Dates: start: 2013

REACTIONS (3)
  - Endometrial adenocarcinoma [None]
  - Endometrial thickening [None]
  - Clear cell endometrial carcinoma [None]

NARRATIVE: CASE EVENT DATE: 20161102
